FAERS Safety Report 6740834-1 (Version None)
Quarter: 2010Q2

REPORT INFORMATION
  Report Type: 
  Country: None (occurrence: None)
  Receive Date: 20100526
  Receipt Date: 20100518
  Transmission Date: 20101027
  Serious: Yes (Hospitalization)
  Sender: FDA-Public Use
  Company Number: US-BIOGENIDEC-2010BI016224

PATIENT
  Age: 33 Year
  Sex: Female
  Weight: 56 kg

DRUGS (2)
  1. TYSABRI [Suspect]
     Indication: MULTIPLE SCLEROSIS
     Route: 042
     Dates: start: 20090806
  2. L-TYROSINE [Concomitant]
     Indication: MULTIPLE SCLEROSIS

REACTIONS (11)
  - ADVERSE DRUG REACTION [None]
  - FATIGUE [None]
  - HEAD TITUBATION [None]
  - HYPOAESTHESIA FACIAL [None]
  - MALAISE [None]
  - MIGRAINE [None]
  - MULTIPLE SCLEROSIS [None]
  - NEURALGIA [None]
  - ORAL HERPES [None]
  - SLEEP PHASE RHYTHM DISTURBANCE [None]
  - TREMOR [None]
